FAERS Safety Report 8935442 (Version 1)
Quarter: 2012Q4

REPORT INFORMATION
  Report Type: Spontaneous
  Country: US (occurrence: None)
  Receive Date: 20121128
  Receipt Date: 20121128
  Transmission Date: 20130627
  Serious: Yes (Hospitalization)
  Sender: FDA-Public Use
  Company Number: None

PATIENT
  Age: 93 Year
  Sex: Female

DRUGS (11)
  1. LEVEMIR [Suspect]
     Indication: DIABETES
     Dosage: 20UNITS BID SQ
     Route: 058
  2. DONEPEZIL [Concomitant]
  3. COREG [Concomitant]
  4. RAMIPRIL [Concomitant]
  5. GABAPENTIN [Concomitant]
  6. KCL [Concomitant]
  7. LASIX [Concomitant]
  8. SIMVASTATIN [Concomitant]
  9. CALTRATE [Concomitant]
  10. AGGRENOX [Concomitant]
  11. GLIMEPIRIDE [Concomitant]

REACTIONS (5)
  - Unresponsive to stimuli [None]
  - Hypoglycaemia [None]
  - Ankle fracture [None]
  - Hypophagia [None]
  - Hyperkalaemia [None]
